FAERS Safety Report 24662701 (Version 1)
Quarter: 2024Q4

REPORT INFORMATION
  Report Type: Report from Study
  Country: US (occurrence: US)
  Receive Date: 20241126
  Receipt Date: 20241126
  Transmission Date: 20250115
  Serious: Yes (Other)
  Sender: ABBVIE
  Company Number: US-ABBVIE-6009370

PATIENT
  Age: 52 Year
  Sex: Female

DRUGS (4)
  1. UBRELVY [Suspect]
     Active Substance: UBROGEPANT
     Indication: Migraine
     Route: 048
  2. UBRELVY [Suspect]
     Active Substance: UBROGEPANT
     Indication: Migraine
     Route: 048
  3. NURTEC ODT [Suspect]
     Active Substance: RIMEGEPANT SULFATE
     Indication: Migraine
     Route: 065
  4. AJOVY [Concomitant]
     Active Substance: FREMANEZUMAB-VFRM
     Indication: Migraine
     Dosage: INJECTABLE
     Dates: start: 2024

REACTIONS (13)
  - Intervertebral disc degeneration [Unknown]
  - Loss of personal independence in daily activities [Unknown]
  - Illness [Not Recovered/Not Resolved]
  - Depressed mood [Unknown]
  - Bedridden [Unknown]
  - Migraine [Not Recovered/Not Resolved]
  - Impaired quality of life [Unknown]
  - Drug ineffective [Unknown]
  - Quality of life decreased [Unknown]
  - Depression [Unknown]
  - Neck pain [Unknown]
  - Therapeutic product effect decreased [Unknown]
  - Headache [Unknown]

NARRATIVE: CASE EVENT DATE: 20220101
